FAERS Safety Report 8544512-8 (Version None)
Quarter: 2012Q3

REPORT INFORMATION
  Report Type: 
  Country: None (occurrence: None)
  Receive Date: 20120727
  Receipt Date: 20120719
  Transmission Date: 20120928
  Serious: Yes (Death, Other)
  Sender: FDA-Public Use
  Company Number: CN-BAXTER-2012BAX012365

PATIENT
  Sex: Male
  Weight: 31 kg

DRUGS (4)
  1. 5% GLUCOSE  INJECTION [Suspect]
     Indication: BRONCHITIS
     Route: 041
     Dates: start: 20101125, end: 20101125
  2. CEFUROXIME SODIUM [Suspect]
     Indication: MYOCARDITIS
  3. 5% GLUCOSE  INJECTION [Suspect]
     Indication: MYOCARDITIS
  4. CEFUROXIME SODIUM [Suspect]
     Indication: BRONCHITIS

REACTIONS (2)
  - SUDDEN DEATH [None]
  - CYANOSIS [None]
